FAERS Safety Report 11628762 (Version 2)
Quarter: 2015Q4

REPORT INFORMATION
  Report Type: Report from Study
  Country: US (occurrence: US)
  Receive Date: 20151014
  Receipt Date: 20151015
  Transmission Date: 20160304
  Serious: Yes (Hospitalization, Other)
  Sender: FDA-Public Use
  Company Number: US-SA-2015SA042398

PATIENT
  Age: 39 Year
  Sex: Male

DRUGS (6)
  1. FABRAZYME [Suspect]
     Active Substance: AGALSIDASE BETA
     Indication: FABRY^S DISEASE
     Dosage: ONE -HALF DOSE EVERY TWO WEEKS
     Route: 041
     Dates: start: 2010
  2. FABRAZYME [Suspect]
     Active Substance: AGALSIDASE BETA
     Indication: FABRY^S DISEASE
     Route: 041
     Dates: start: 200406, end: 2009
  3. FABRAZYME [Suspect]
     Active Substance: AGALSIDASE BETA
     Indication: FABRY^S DISEASE
     Dosage: DOSE: 40-45 MG EVERYTWO TO  THREE WEEKS
     Route: 041
     Dates: start: 200910, end: 201004
  4. FABRAZYME [Suspect]
     Active Substance: AGALSIDASE BETA
     Indication: FABRY^S DISEASE
     Route: 041
     Dates: start: 200406, end: 2009
  5. FABRAZYME [Suspect]
     Active Substance: AGALSIDASE BETA
     Indication: FABRY^S DISEASE
     Route: 041
     Dates: start: 201202
  6. BENADRYL [Concomitant]
     Active Substance: DIPHENHYDRAMINE HYDROCHLORIDE
     Indication: PREMEDICATION

REACTIONS (51)
  - Abdominal distension [Recovered/Resolved]
  - Heart rate decreased [Unknown]
  - Headache [Unknown]
  - VIIth nerve paralysis [Unknown]
  - Eustachian tube dysfunction [Recovering/Resolving]
  - Deafness unilateral [Recovered/Resolved]
  - Neuropathy peripheral [Unknown]
  - Gastrointestinal disorder [Recovering/Resolving]
  - Abdominal discomfort [Unknown]
  - Constipation [Unknown]
  - Angiokeratoma [Unknown]
  - Heart rate increased [Recovered/Resolved]
  - Paraesthesia [Recovering/Resolving]
  - Nail discolouration [Recovered/Resolved]
  - Left ventricular hypertrophy [Unknown]
  - Pyrexia [Unknown]
  - Vomiting [Unknown]
  - Pain [Recovered/Resolved]
  - Vomiting [Recovered/Resolved]
  - Back pain [Not Recovered/Not Resolved]
  - Flushing [Recovered/Resolved]
  - Tooth disorder [Recovered/Resolved]
  - Pharyngitis [Unknown]
  - Influenza like illness [Unknown]
  - Hypoaesthesia [Recovered/Resolved]
  - Pain [Recovering/Resolving]
  - Viral infection [Recovered/Resolved]
  - Pyrexia [Recovered/Resolved]
  - Nephropathy [Unknown]
  - Intervertebral disc operation [Recovering/Resolving]
  - Nausea [Recovering/Resolving]
  - Dyspepsia [Unknown]
  - Infusion related reaction [Unknown]
  - Vomiting [Recovering/Resolving]
  - Confusional state [Recovered/Resolved]
  - Paraesthesia [Recovered/Resolved]
  - Pain in extremity [Not Recovered/Not Resolved]
  - Transient ischaemic attack [Recovered/Resolved]
  - Dizziness [Unknown]
  - Tremor [Unknown]
  - Radiculopathy [Unknown]
  - Nausea [Recovered/Resolved]
  - Impaired gastric emptying [Unknown]
  - Diarrhoea [Unknown]
  - Blood pressure increased [Recovered/Resolved]
  - Chills [Recovered/Resolved]
  - Blood pressure decreased [Unknown]
  - Peripheral coldness [Recovered/Resolved]
  - Vitamin D deficiency [Unknown]
  - Vision blurred [Recovered/Resolved]
  - Chest discomfort [Recovered/Resolved]

NARRATIVE: CASE EVENT DATE: 2006
